FAERS Safety Report 7342981-2 (Version None)
Quarter: 2011Q1

REPORT INFORMATION
  Report Type: 
  Country: None (occurrence: None)
  Receive Date: 20110310
  Receipt Date: 20110302
  Transmission Date: 20110831
  Serious: Yes (Other)
  Sender: FDA-Public Use
  Company Number: PHHY2011US15119

PATIENT
  Sex: Female
  Weight: 115.19 kg

DRUGS (20)
  1. GILENYA [Suspect]
     Indication: MULTIPLE SCLEROSIS
     Dosage: 0.5 MG, QD
     Route: 048
     Dates: start: 20110209
  2. KLONOPIN [Concomitant]
     Indication: ANXIETY
     Dosage: 0.5 MG, BID
     Route: 048
  3. ERGOCALCIFEROL [Concomitant]
     Dosage: 50000 IU, EVERY WEEK
     Route: 048
  4. ALLEGRA [Concomitant]
     Indication: HYPERSENSITIVITY
     Dosage: 180 MG, QD
     Route: 048
  5. COQ10 [Concomitant]
     Dosage: UNK, QD
     Route: 048
  6. ASCORBIC ACID [Concomitant]
     Dosage: UNK, QD
     Route: 048
  7. DICLOFENAC SODIUM [Concomitant]
     Dosage: UNK
  8. URECHOLINE [Concomitant]
     Indication: BLADDER DYSFUNCTION
     Dosage: 50 MG, TID
     Route: 048
  9. PEPCID [Concomitant]
     Indication: GASTROOESOPHAGEAL REFLUX DISEASE
     Dosage: 40 MG, QD
     Route: 048
  10. M.V.I. [Concomitant]
     Dosage: UNK, QD
  11. LEVOTHYROXINE [Concomitant]
     Indication: HYPOTHYROIDISM
     Dosage: 50 UG, QD
     Route: 048
  12. GLIMEPIRIDE [Concomitant]
     Indication: TYPE 2 DIABETES MELLITUS
     Dosage: 4 MG, QD
     Route: 048
  13. ACTONEL [Concomitant]
     Indication: OSTEOPOROSIS
     Dosage: UNK, EVERY MONTH
     Route: 048
  14. LEXAPRO [Concomitant]
     Indication: DEPRESSION
     Dosage: 10 MG, QD
     Route: 048
  15. VITAMIN D [Concomitant]
     Dosage: UNK
  16. CYMBALTA [Concomitant]
     Indication: DEPRESSION
     Dosage: 60 MG, QD
     Route: 048
  17. TRILEPTAL [Concomitant]
     Indication: PAIN
     Dosage: 450 MG, BID
     Route: 048
  18. TOPAMAX [Concomitant]
     Indication: PAIN
     Dosage: 50 MG, BID
     Route: 048
  19. CALCIUM [Concomitant]
     Dosage: UNK, QD
  20. CRANBERRY [Concomitant]
     Dosage: UNK, QD

REACTIONS (4)
  - PAIN [None]
  - FUNGAL INFECTION [None]
  - ERYTHEMA [None]
  - SKIN WRINKLING [None]
